FAERS Safety Report 16940895 (Version 7)
Quarter: 2020Q4

REPORT INFORMATION
  Report Type: Spontaneous
  Country: PL (occurrence: PL)
  Receive Date: 20191021
  Receipt Date: 20201119
  Transmission Date: 20210113
  Serious: Yes (Hospitalization, Other)
  Sender: FDA-Public Use
  Company Number: PL-MYLANLABS-2019M1097839

PATIENT
  Age: 80 Year
  Sex: Female

DRUGS (15)
  1. SILDENAFIL. [Suspect]
     Active Substance: SILDENAFIL
     Dosage: 225 MILLIGRAM, QD (25 MG TID)
     Route: 065
  2. SPIRONOLACTONE. [Suspect]
     Active Substance: SPIRONOLACTONE
     Indication: PULMONARY HYPERTENSION
     Dosage: 25 MILLIGRAM, QD
  3. RIOCIGUAT. [Concomitant]
     Active Substance: RIOCIGUAT
     Dosage: INCREASED TO THE TARGET DOSE OF 2.5 MG TID
     Dates: start: 201807
  4. SILDENAFIL. [Suspect]
     Active Substance: SILDENAFIL
     Indication: PULMONARY HYPERTENSION
     Dosage: (25 MILLIGRAM, TID)
     Route: 065
     Dates: end: 201807
  5. ILOPROST. [Concomitant]
     Active Substance: ILOPROST
     Indication: PRODUCT USED FOR UNKNOWN INDICATION
     Dosage: UNK
  6. TORASEMIDE [Concomitant]
     Active Substance: TORSEMIDE
     Dosage: 20 MILLIGRAM, QD
  7. VALSARTAN. [Suspect]
     Active Substance: VALSARTAN
     Indication: PRODUCT USED FOR UNKNOWN INDICATION
     Dosage: 80 MILLIGRAM, QD
     Route: 065
  8. RIOCIGUAT. [Concomitant]
     Active Substance: RIOCIGUAT
     Dosage: 2.5 MILLIGRAM
     Dates: start: 201807
  9. SILDENAFIL. [Suspect]
     Active Substance: SILDENAFIL
     Dosage: 25 MILLIGRAM, QD, TID
     Route: 065
     Dates: start: 201705
  10. TORASEMIDE [Concomitant]
     Active Substance: TORSEMIDE
     Indication: DIURETIC THERAPY
     Dosage: 10 MILLIGRAM, QD
     Dates: start: 201705
  11. ACENOCOUMAROL [Suspect]
     Active Substance: ACENOCOUMAROL
     Indication: PULMONARY HYPERTENSION
     Dosage: UNK
  12. METOPROLOL. [Suspect]
     Active Substance: METOPROLOL
     Indication: PRODUCT USED FOR UNKNOWN INDICATION
     Dosage: 50 MILLIGRAM, QD
     Route: 065
  13. ACETYLSALICYLIC ACID [Suspect]
     Active Substance: ASPIRIN
     Indication: PRODUCT USED FOR UNKNOWN INDICATION
     Dosage: UNK
     Dates: start: 201801
  14. SPIRONOLACTONE. [Suspect]
     Active Substance: SPIRONOLACTONE
     Indication: DIURETIC THERAPY
     Dosage: 50 MILLIGRAM, QD
     Route: 065
     Dates: start: 201807
  15. RIOCIGUAT. [Concomitant]
     Active Substance: RIOCIGUAT
     Indication: PULMONARY HYPERTENSION
     Dosage: UNK
     Dates: start: 201807

REACTIONS (9)
  - Dyspnoea exertional [Recovering/Resolving]
  - Vascular resistance pulmonary decreased [Unknown]
  - Therapeutic product effect incomplete [Unknown]
  - Condition aggravated [Recovered/Resolved]
  - Pulmonary hypertension [Recovering/Resolving]
  - Off label use [Unknown]
  - Bradycardia [Unknown]
  - Left-to-right cardiac shunt [Unknown]
  - Hypotension [Unknown]

NARRATIVE: CASE EVENT DATE: 2017
